FAERS Safety Report 13017018 (Version 1)
Quarter: 2016Q4

REPORT INFORMATION
  Report Type: Spontaneous
  Country: IL (occurrence: IL)
  Receive Date: 20161212
  Receipt Date: 20161212
  Transmission Date: 20170207
  Serious: Yes (Hospitalization)
  Sender: FDA-Public Use
  Company Number: IL-GLENMARK PHARMACEUTICALS INC, USA.-2016GMK025132

PATIENT
  Age: 31 Year
  Sex: Female

DRUGS (2)
  1. DESMOPRESSIN ACETATE. [Suspect]
     Active Substance: DESMOPRESSIN ACETATE
     Indication: HYPOPITUITARISM
     Dosage: UNK
     Route: 065
  2. ELTROXIN [Suspect]
     Active Substance: LEVOTHYROXINE
     Indication: HYPOPITUITARISM
     Dosage: UNK
     Route: 065

REACTIONS (4)
  - Postpartum haemorrhage [Unknown]
  - Procedural haemorrhage [Unknown]
  - Exposure during pregnancy [Unknown]
  - Caesarean section [Unknown]
